FAERS Safety Report 9200608 (Version 1)
Quarter: 2013Q1

REPORT INFORMATION
  Report Type: Report from Study
  Country: US (occurrence: US)
  Receive Date: 20130329
  Receipt Date: 20130329
  Transmission Date: 20140127
  Serious: Yes (Other)
  Sender: FDA-Public Use
  Company Number: US-PFIZER INC-2008013170JJ

PATIENT
  Age: 50 Year
  Sex: Female
  Weight: 71.21 kg

DRUGS (1)
  1. MOTRIN [Suspect]
     Dosage: UNSPECIFIED
     Route: 048
     Dates: end: 20080528

REACTIONS (3)
  - Gastric haemorrhage [Recovered/Resolved]
  - Abnormal faeces [Recovered/Resolved]
  - Faeces discoloured [Recovered/Resolved]
